FAERS Safety Report 7714982-3 (Version None)
Quarter: 2011Q3

REPORT INFORMATION
  Report Type: 
  Country: None (occurrence: None)
  Receive Date: 20110829
  Receipt Date: 20110623
  Transmission Date: 20111222
  Serious: No
  Sender: FDA-Public Use
  Company Number: US-ASTRAZENECA-2011SE38003

PATIENT
  Age: 63 Year
  Sex: Male

DRUGS (1)
  1. VIMOVO [Suspect]
     Indication: NERVE COMPRESSION
     Dosage: TWO TIMES A DAY
     Route: 048

REACTIONS (2)
  - OEDEMA PERIPHERAL [None]
  - JOINT SWELLING [None]
